FAERS Safety Report 16779528 (Version 2)
Quarter: 2019Q4

REPORT INFORMATION
  Report Type: Report from Study
  Country: IT (occurrence: IT)
  Receive Date: 20190906
  Receipt Date: 20191030
  Transmission Date: 20200122
  Serious: Yes (Hospitalization)
  Sender: FDA-Public Use
  Company Number: IT-ACCORD-153944

PATIENT
  Age: 82 Year
  Sex: Male

DRUGS (4)
  1. LODOTRA [Concomitant]
     Active Substance: PREDNISONE
     Dosage: STRENGTH 2 MG
  2. METHOTREXATE. [Suspect]
     Active Substance: METHOTREXATE
     Indication: RHEUMATOID ARTHRITIS
     Dosage: STRENGTH 2.5 MG TABLETS
     Dates: start: 20130128, end: 20190425
  3. OMNIC [Concomitant]
     Active Substance: TAMSULOSIN HYDROCHLORIDE
     Dosage: STRENGTH 0.4 MG, MODIFIED RELEASE HARD CAPSULES
  4. FOLINA [Concomitant]
     Dosage: STRENGTH 5 MG

REACTIONS (3)
  - Bone marrow failure [Recovering/Resolving]
  - Inappropriate schedule of product administration [Unknown]
  - Medication error [Unknown]

NARRATIVE: CASE EVENT DATE: 20190419
